FAERS Safety Report 5360366-5 (Version None)
Quarter: 2007Q2

REPORT INFORMATION
  Report Type: 
  Country: None (occurrence: None)
  Receive Date: 20070618
  Receipt Date: 20070606
  Transmission Date: 20071010
  Serious: Yes (Hospitalization, Disabling)
  Sender: FDA-Public Use
  Company Number: FR-AMGEN-UK228582

PATIENT
  Age: 35 Year
  Sex: Female

DRUGS (10)
  1. ARANESP [Suspect]
     Indication: RENAL FAILURE CHRONIC
     Route: 042
     Dates: start: 20060126
  2. IRBESARTAN [Concomitant]
  3. FOSINOPRIL SODIUM [Concomitant]
  4. ALFACALCIDOL [Concomitant]
  5. LIOTHYRONINE SODIUM [Concomitant]
  6. LEVOTHYROXINE SODIUM [Concomitant]
  7. AMLODIPINE [Concomitant]
  8. PANTOPRAZOLE SODIUM [Concomitant]
  9. ZOLPIDEM [Concomitant]
  10. PRAZEPAM [Concomitant]
     Route: 065

REACTIONS (4)
  - CONVULSION [None]
  - HYPERTENSION [None]
  - HYPERTENSIVE ENCEPHALOPATHY [None]
  - STATUS EPILEPTICUS [None]
